FAERS Safety Report 24627923 (Version 1)
Quarter: 2024Q4

REPORT INFORMATION
  Report Type: Spontaneous
  Country: US (occurrence: US)
  Receive Date: 20241117
  Receipt Date: 20241117
  Transmission Date: 20250115
  Serious: No
  Sender: ALEXION PHARMACEUTICALS
  Company Number: US-AstraZeneca-CH-00733210A

PATIENT

DRUGS (6)
  1. TAGRISSO [Interacting]
     Active Substance: OSIMERTINIB
  2. TAGRISSO [Interacting]
     Active Substance: OSIMERTINIB
  3. TAGRISSO [Interacting]
     Active Substance: OSIMERTINIB
  4. TAGRISSO [Interacting]
     Active Substance: OSIMERTINIB
  5. OXCARBAZEPINE [Interacting]
     Active Substance: OXCARBAZEPINE
  6. OXCARBAZEPINE [Interacting]
     Active Substance: OXCARBAZEPINE
     Route: 065

REACTIONS (2)
  - Drug interaction [Unknown]
  - Drug ineffective [Unknown]
